FAERS Safety Report 5014929-7 (Version None)
Quarter: 2006Q2

REPORT INFORMATION
  Report Type: 
  Country: None (occurrence: None)
  Receive Date: 20060531
  Receipt Date: 20060308
  Transmission Date: 20061013
  Serious: Yes (Life-Threatening, Hospitalization)
  Sender: FDA-Public Use
  Company Number: US-ROCHE-439762

PATIENT
  Age: 49 Year
  Sex: Female
  Weight: 63 kg

DRUGS (19)
  1. PEG-INTERFERON ALFA 2A (RO 25-8310) [Suspect]
     Indication: HEPATITIS C
     Route: 058
     Dates: start: 20050912, end: 20060217
  2. RIBAVIRIN [Suspect]
     Indication: HEPATITIS C
     Route: 048
     Dates: start: 20050912, end: 20060102
  3. PROGRAF [Concomitant]
     Dates: start: 20051115
  4. BACTRIM [Concomitant]
     Dosage: IN THE AFTERNOON.
     Dates: start: 20050604, end: 20060410
  5. GLIPIZIDE [Concomitant]
     Dosage: 10 MG QAM, 5 MG QPM.
     Dates: start: 20050616
  6. LASIX [Concomitant]
     Dates: start: 20060301, end: 20060301
  7. NORCO [Concomitant]
     Dates: start: 20060228
  8. ULTRAM [Concomitant]
     Dates: start: 20060228
  9. NICOTINE [Concomitant]
     Dates: start: 20060228
  10. GI COCKTAIL [Concomitant]
     Dates: start: 20060227
  11. HYDROCHLOROTHIAZIDE [Concomitant]
     Dates: start: 20060302
  12. DUONEB [Concomitant]
     Dosage: EVERY 6 HOURS IF NEEDED.
     Route: 055
  13. INSULIN [Concomitant]
     Dosage: DOSE = SLIDING SCALE
     Dates: start: 20060413
  14. MAGNESIUM OXIDE [Concomitant]
     Dates: start: 20060513
  15. MAGNESIUM SULFATE [Concomitant]
     Dosage: ROUTE = INTRAVENOUS PIGGYBACK
     Route: 042
     Dates: start: 20060513
  16. ONDANSETRON HCL [Concomitant]
     Dosage: ROUTE = INTRAVENOUS PUSH
     Route: 042
     Dates: start: 20060513
  17. TRAMADOL HCL [Concomitant]
     Route: 048
     Dates: start: 20060514
  18. ZOSYN [Concomitant]
     Route: 042
     Dates: start: 20060513, end: 20060514
  19. UNSPECIFIED DRUG [Concomitant]
     Dosage: DRUG REPORTED AS KAEXELATE
     Route: 048
     Dates: start: 20060513

REACTIONS (24)
  - ARTERIAL DISORDER [None]
  - ATELECTASIS [None]
  - AUTOIMMUNE HEPATITIS [None]
  - BLOOD SODIUM DECREASED [None]
  - COMPLICATIONS OF TRANSPLANT SURGERY [None]
  - DISEASE RECURRENCE [None]
  - EPIGASTRIC DISCOMFORT [None]
  - FEBRILE NEUTROPENIA [None]
  - HAEMOGLOBIN DECREASED [None]
  - HEPATIC NECROSIS [None]
  - HEPATITIS C VIRUS [None]
  - HYPERKALAEMIA [None]
  - HYPOALDOSTERONISM [None]
  - IMMUNOSUPPRESSANT DRUG LEVEL INCREASED [None]
  - INFLUENZA [None]
  - LUNG INFECTION [None]
  - LUNG TRANSPLANT REJECTION [None]
  - PLEURAL EFFUSION [None]
  - PNEUMONIA [None]
  - PYREXIA [None]
  - RASH [None]
  - RENAL FAILURE ACUTE [None]
  - RENAL TUBULAR ACIDOSIS [None]
  - SPLENOMEGALY [None]
